FAERS Safety Report 12726697 (Version 1)
Quarter: 2016Q3

REPORT INFORMATION
  Report Type: Spontaneous
  Country: US (occurrence: US)
  Receive Date: 20160908
  Receipt Date: 20160908
  Transmission Date: 20161109
  Serious: No
  Sender: FDA-Public Use
  Company Number: US-009507513-1609USA003287

PATIENT
  Age: 45 Year
  Sex: Female

DRUGS (1)
  1. HEXADROL [Suspect]
     Active Substance: DEXAMETHASONE
     Indication: LICHEN MYXOEDEMATOSUS
     Dosage: UNK
     Route: 048

REACTIONS (1)
  - Treatment failure [Unknown]
